FAERS Safety Report 5571063-5 (Version None)
Quarter: 2007Q4

REPORT INFORMATION
  Report Type: 
  Country: None (occurrence: None)
  Receive Date: 20071219
  Receipt Date: 20071206
  Transmission Date: 20080405
  Serious: Yes (Other)
  Sender: FDA-Public Use
  Company Number: 012071

PATIENT
  Age: 31 Year
  Sex: Female
  Weight: 57.6 kg

DRUGS (1)
  1. CLARAVIS [Suspect]
     Dosage: 40 MJG, QD, ORAL
     Route: 048
     Dates: start: 20070328, end: 20070328

REACTIONS (5)
  - DRUG EXPOSURE DURING PREGNANCY [None]
  - GASTROENTERITIS VIRAL [None]
  - PREGNANCY ON ORAL CONTRACEPTIVE [None]
  - TREATMENT NONCOMPLIANCE [None]
  - UNINTENDED PREGNANCY [None]
